FAERS Safety Report 16862954 (Version 1)
Quarter: 2019Q3

REPORT INFORMATION
  Report Type: Spontaneous
  Country: JP (occurrence: JP)
  Receive Date: 20190927
  Receipt Date: 20190927
  Transmission Date: 20191005
  Serious: Yes (Other)
  Sender: FDA-Public Use
  Company Number: PHJP2019JP012248

PATIENT

DRUGS (1)
  1. AFINITOR [Suspect]
     Active Substance: EVEROLIMUS
     Indication: ANGIOMYOLIPOMA
     Dosage: UNK
     Route: 048

REACTIONS (4)
  - Concomitant disease aggravated [Unknown]
  - Stomatitis [Unknown]
  - Epilepsy [Unknown]
  - Pyrexia [Unknown]
